FAERS Safety Report 23089400 (Version 1)
Quarter: 2023Q4

REPORT INFORMATION
  Report Type: Spontaneous
  Country: JP (occurrence: JP)
  Receive Date: 20231020
  Receipt Date: 20231020
  Transmission Date: 20240110
  Serious: Yes (Death)
  Sender: FDA-Public Use
  Company Number: JP-PFIZER INC-PV202300168844

PATIENT
  Age: 78 Year
  Sex: Male

DRUGS (4)
  1. SOLU-MEDROL [Suspect]
     Active Substance: METHYLPREDNISOLONE SODIUM SUCCINATE
     Indication: Toxic epidermal necrolysis
     Dosage: UNK
  2. SOLU-MEDROL [Suspect]
     Active Substance: METHYLPREDNISOLONE SODIUM SUCCINATE
     Dosage: 1000 MG
  3. INFLIXIMAB [Suspect]
     Active Substance: INFLIXIMAB
     Indication: Toxic epidermal necrolysis
  4. KENKETU GLOVENIN-I [Concomitant]
     Active Substance: HUMAN IMMUNOGLOBULIN G
     Indication: Toxic epidermal necrolysis
     Dosage: 20000 MG
     Route: 042

REACTIONS (4)
  - Toxic epidermal necrolysis [Fatal]
  - Disease progression [Fatal]
  - Off label use [Unknown]
  - Drug ineffective for unapproved indication [Unknown]
